FAERS Safety Report 16903626 (Version 1)
Quarter: 2019Q4

REPORT INFORMATION
  Report Type: Report from Study
  Country: US (occurrence: US)
  Receive Date: 20191010
  Receipt Date: 20191010
  Transmission Date: 20200122
  Serious: Yes (Hospitalization)
  Sender: FDA-Public Use
  Company Number: US-KARYOPHARM-2016KPT000093

PATIENT
  Age: 48 Year
  Sex: Female
  Weight: 113 kg

DRUGS (13)
  1. SELINEXOR [Suspect]
     Active Substance: SELINEXOR
     Dosage: 60 MG, WEEKLY
     Route: 048
     Dates: start: 20160222, end: 20160307
  2. DEXAMETHASONE. [Concomitant]
     Active Substance: DEXAMETHASONE
     Indication: FATIGUE
  3. MELATONIN [Concomitant]
     Active Substance: MELATONIN
     Indication: INSOMNIA
     Dosage: 3 MG, QD
     Dates: start: 20150812
  4. DEXAMETHASONE. [Concomitant]
     Active Substance: DEXAMETHASONE
     Indication: NAUSEA
     Dosage: 4 MG, QD
     Route: 048
     Dates: start: 20151231
  5. ONDANSETRON [Concomitant]
     Active Substance: ONDANSETRON
     Indication: NAUSEA
     Dosage: 8 MG, PRN
     Route: 048
     Dates: start: 20150812
  6. SELINEXOR [Suspect]
     Active Substance: SELINEXOR
     Indication: DIFFUSE LARGE B-CELL LYMPHOMA
     Dosage: 100 MG, TWICE WEEKLY
     Route: 048
     Dates: start: 20151231, end: 20160103
  7. SELINEXOR [Suspect]
     Active Substance: SELINEXOR
     Dosage: 60 MG, TWICE WEEKLY
     Route: 048
     Dates: start: 20160201, end: 20160213
  8. SELINEXOR [Suspect]
     Active Substance: SELINEXOR
     Dosage: 60 MG, WEEKLY
     Route: 048
     Dates: start: 20160320, end: 20160320
  9. AZITHROMYCIN ANHYDROUS. [Concomitant]
     Active Substance: AZITHROMYCIN ANHYDROUS
     Dosage: 250 MG, ON DAYS 2-4
     Dates: start: 20160316, end: 20160319
  10. SELINEXOR [Suspect]
     Active Substance: SELINEXOR
     Dosage: UNK
  11. COMPAZINE                          /00013302/ [Concomitant]
     Active Substance: PROCHLORPERAZINE EDISYLATE
     Indication: NAUSEA
     Dosage: 10 MG, PRN
     Dates: start: 20150812
  12. SELINEXOR [Suspect]
     Active Substance: SELINEXOR
     Dosage: 80 MG, TWICE WEEKLY
     Route: 048
     Dates: start: 20160114, end: 20160116
  13. AZITHROMYCIN ANHYDROUS. [Concomitant]
     Active Substance: AZITHROMYCIN ANHYDROUS
     Indication: UPPER RESPIRATORY TRACT INFECTION
     Dosage: 500 MG, DAY 1
     Dates: start: 20160316, end: 20160319

REACTIONS (2)
  - Upper respiratory tract infection [Recovered/Resolved]
  - Dyspnoea [Recovered/Resolved]

NARRATIVE: CASE EVENT DATE: 20160323
